FAERS Safety Report 7401151-X (Version None)
Quarter: 2011Q2

REPORT INFORMATION
  Report Type: 
  Country: None (occurrence: None)
  Receive Date: 20110407
  Receipt Date: 20110329
  Transmission Date: 20111010
  Serious: Yes (Other)
  Sender: FDA-Public Use
  Company Number: US-ASTRAZENECA-2011SE17965

PATIENT
  Sex: Female

DRUGS (3)
  1. TOPROL-XL [Suspect]
     Route: 048
     Dates: start: 19920101, end: 20080328
  2. TOPROL-XL [Suspect]
     Route: 048
     Dates: start: 20080408
  3. METOPROLOL SUCCINATE (SANDOZ) [Suspect]
     Route: 048
     Dates: start: 20070328

REACTIONS (4)
  - DEHYDRATION [None]
  - FATIGUE [None]
  - MENTAL IMPAIRMENT [None]
  - AMNESIA [None]
